FAERS Safety Report 9393414 (Version 1)
Quarter: 2013Q3

REPORT INFORMATION
  Report Type: Spontaneous
  Country: US (occurrence: None)
  Receive Date: 20130709
  Receipt Date: 20130709
  Transmission Date: 20140515
  Serious: Yes (Hospitalization)
  Sender: FDA-Public Use
  Company Number: None

PATIENT
  Age: 77 Year
  Sex: Male
  Weight: 82 kg

DRUGS (2)
  1. CYTARABINE [Suspect]
     Dosage: TORAL DOSE 17550 MG
  2. ALBUTEROL INHALER [Concomitant]

REACTIONS (1)
  - Gastrointestinal haemorrhage [None]
